FAERS Safety Report 5119146-8 (Version None)
Quarter: 2006Q3

REPORT INFORMATION
  Report Type: 
  Country: None (occurrence: None)
  Receive Date: 20060929
  Receipt Date: 20060929
  Transmission Date: 20061208
  Serious: Yes (Life-Threatening)
  Sender: FDA-Public Use
  Company Number: None

PATIENT
  Age: 29 Year
  Sex: Female
  Weight: 113.3993 kg

DRUGS (1)
  1. RISPERDAL [Suspect]
     Indication: DELUSIONAL DISORDER, PERSECUTORY TYPE
     Dosage: 1MG - 4 MG DAILY
     Dates: start: 19960801, end: 20060919

REACTIONS (9)
  - BLOOD CHOLESTEROL INCREASED [None]
  - BLOOD PROLACTIN INCREASED [None]
  - BREAST CANCER FEMALE [None]
  - DIABETES MELLITUS [None]
  - DILATATION ATRIAL [None]
  - HEPATIC ENZYME INCREASED [None]
  - HEPATIC STEATOSIS [None]
  - HYPERTENSION [None]
  - MUSCLE TWITCHING [None]
